FAERS Safety Report 6003104-5 (Version None)
Quarter: 2008Q4

REPORT INFORMATION
  Report Type: 
  Country: None (occurrence: None)
  Receive Date: 20081215
  Receipt Date: 20081215
  Transmission Date: 20090506
  Serious: No
  Sender: FDA-Public Use
  Company Number: None

PATIENT
  Age: 47 Year
  Sex: Female
  Weight: 117.4816 kg

DRUGS (2)
  1. JANUVIA [Suspect]
     Indication: INSULIN RESISTANCE
     Dosage: 1 PILL IN THE MORNING PO
     Route: 048
     Dates: start: 20081022, end: 20081213
  2. JANUVIA [Suspect]
     Indication: MALAISE
     Dosage: 1 PILL IN THE MORNING PO
     Route: 048
     Dates: start: 20081022, end: 20081213

REACTIONS (3)
  - CLUMSINESS [None]
  - INSOMNIA [None]
  - POOR QUALITY SLEEP [None]
